FAERS Safety Report 6256728-4 (Version None)
Quarter: 2009Q3

REPORT INFORMATION
  Report Type: 
  Country: None (occurrence: None)
  Receive Date: 20090706
  Receipt Date: 20090624
  Transmission Date: 20100115
  Serious: Yes (Hospitalization)
  Sender: FDA-Public Use
  Company Number: DE-JNJFOC-20090608748

PATIENT
  Age: 26 Year
  Sex: Male

DRUGS (11)
  1. RISPERDAL [Suspect]
     Route: 048
  2. RISPERDAL [Suspect]
     Route: 048
  3. RISPERDAL [Suspect]
     Route: 048
  4. RISPERDAL [Suspect]
     Indication: DRUG USE FOR UNKNOWN INDICATION
     Route: 048
  5. ZYPREXA [Suspect]
     Route: 048
  6. ZYPREXA [Suspect]
     Indication: DRUG USE FOR UNKNOWN INDICATION
     Route: 048
  7. TAVOR [Concomitant]
     Route: 048
  8. TAVOR [Concomitant]
     Route: 048
  9. TAVOR [Concomitant]
     Route: 048
  10. TAVOR [Concomitant]
     Route: 048
  11. TEMAZEPAM [Concomitant]
     Route: 048

REACTIONS (4)
  - CONVULSION [None]
  - GRAND MAL CONVULSION [None]
  - HYPONATRAEMIA [None]
  - POLYDIPSIA [None]
